FAERS Safety Report 16312929 (Version 1)
Quarter: 2019Q2

REPORT INFORMATION
  Report Type: Spontaneous
  Country: GB (occurrence: GB)
  Receive Date: 20190515
  Receipt Date: 20190515
  Transmission Date: 20190711
  Serious: Yes (Other)
  Sender: FDA-Public Use
  Company Number: GB-ROCHE-2315381

PATIENT
  Sex: Male
  Weight: 8.63 kg

DRUGS (3)
  1. AMPICILLIN [Concomitant]
     Active Substance: AMPICILLIN
  2. DIAZEPAM. [Suspect]
     Active Substance: DIAZEPAM
     Indication: STATUS EPILEPTICUS
     Route: 030
  3. PHENYTOIN. [Concomitant]
     Active Substance: PHENYTOIN
     Route: 030

REACTIONS (1)
  - Respiratory depression [Recovered/Resolved]
